FAERS Safety Report 8838423 (Version 1)
Quarter: 2012Q4

REPORT INFORMATION
  Report Type: 
  Country: BR (occurrence: BR)
  Receive Date: 20121012
  Receipt Date: 20121012
  Transmission Date: 20130627
  Serious: Yes (Other)
  Sender: FDA-Public Use
  Company Number: BR-ASTRAZENECA-2012SE76897

PATIENT
  Age: 48 Year
  Sex: Female

DRUGS (3)
  1. ATACAND [Suspect]
     Indication: DIABETES MELLITUS
     Route: 048
     Dates: start: 2008, end: 201102
  2. ATACAND [Suspect]
     Indication: DIABETES MELLITUS
     Route: 048
     Dates: start: 201102
  3. ATACAND HCT [Suspect]
     Indication: DIABETES MELLITUS
     Dosage: 16/12.5mg
     Route: 048
     Dates: start: 201102

REACTIONS (3)
  - Diabetes mellitus [Unknown]
  - Hypertension [Recovered/Resolved]
  - Off label use [Not Recovered/Not Resolved]
